FAERS Safety Report 16770668 (Version 2)
Quarter: 2019Q3

REPORT INFORMATION
  Report Type: Report from Study
  Country: GT (occurrence: GT)
  Receive Date: 20190904
  Receipt Date: 20190916
  Transmission Date: 20191005
  Serious: Yes (Other)
  Sender: FDA-Public Use
  Company Number: PHHY2019GT204669

PATIENT
  Age: 80 Year
  Sex: Female

DRUGS (1)
  1. VYMADA [Suspect]
     Active Substance: SACUBITRIL\VALSARTAN
     Indication: PRODUCT USED FOR UNKNOWN INDICATION
     Dosage: 0.5 DF (SACUBITRIL 49MG/VALSARTAN 51 MG), QD
     Route: 065

REACTIONS (5)
  - Inappropriate schedule of product administration [Unknown]
  - Tachycardia [Unknown]
  - Insomnia [Unknown]
  - Wrong technique in product usage process [Unknown]
  - Underdose [Unknown]
